FAERS Safety Report 22654935 (Version 6)
Quarter: 2024Q2

REPORT INFORMATION
  Report Type: Report from Study
  Country: RO (occurrence: RO)
  Receive Date: 20230629
  Receipt Date: 20240503
  Transmission Date: 20240716
  Serious: Yes (Death, Life-Threatening, Hospitalization, Other)
  Sender: FDA-Public Use
  Company Number: RO-AMGEN-ROUNI2023093376

PATIENT
  Age: 69 Year
  Sex: Male
  Weight: 80 kg

DRUGS (12)
  1. BEVACIZUMAB [Suspect]
     Active Substance: BEVACIZUMAB
     Indication: Hepatocellular carcinoma
     Dosage: 1300 MILLIGRAM
     Route: 065
     Dates: start: 20230405
  2. ATEZOLIZUMAB [Suspect]
     Active Substance: ATEZOLIZUMAB
     Indication: Hepatocellular carcinoma
     Dosage: 1200 MILLIGRAM, Q3WK, DOSE LAST STUDY DRUG ADMIN PRIOR AE AND SAE IS 1200 MGSTART DATE OF MOST RECEN
     Route: 040
     Dates: start: 20230405
  3. ZOLEDRONIC ACID [Concomitant]
     Active Substance: ZOLEDRONIC ACID
     Dosage: 4 MILLIGRAM, QMO
     Dates: start: 20230405
  4. OLMESARTAN [Concomitant]
     Active Substance: OLMESARTAN
     Dosage: 20 MILLIGRAM, QD
  5. AMLODIPINE [Concomitant]
     Active Substance: AMLODIPINE BESYLATE
     Dosage: 5 MILLIGRAM, QD
  6. DEXTROSE [Concomitant]
     Active Substance: DEXTROSE\DEXTROSE MONOHYDRATE
     Dosage: 500 MILLILITER, QD
     Dates: start: 20230420, end: 20230420
  7. TRAMADOL [Concomitant]
     Active Substance: TRAMADOL\TRAMADOL HYDROCHLORIDE
     Dosage: 150 MILLIGRAM, Q12H
     Dates: start: 20230426
  8. TRAMADOL [Concomitant]
     Active Substance: TRAMADOL\TRAMADOL HYDROCHLORIDE
     Dates: start: 20230426
  9. NEBIVOLOL [Concomitant]
     Active Substance: NEBIVOLOL
     Dosage: 5 MILLIGRAM, QD
  10. FENTANYL [Concomitant]
     Active Substance: FENTANYL\FENTANYL CITRATE
     Dosage: UNK
  11. ALBUMIN HUMAN [Concomitant]
     Active Substance: ALBUMIN HUMAN
     Dosage: UNK UNK, QD
     Dates: start: 20230618, end: 20230620
  12. Terlipresina [Concomitant]
     Dosage: UNK UNK, QD
     Dates: start: 20230618, end: 20230620

REACTIONS (9)
  - Vena cava thrombosis [Recovering/Resolving]
  - Pulmonary embolism [Fatal]
  - Acute kidney injury [Recovered/Resolved]
  - Back pain [Recovered/Resolved]
  - Ascites [Recovering/Resolving]
  - Alanine aminotransferase increased [Recovering/Resolving]
  - Aspartate aminotransferase increased [Recovering/Resolving]
  - Fatigue [Not Recovered/Not Resolved]
  - Fatigue [Not Recovered/Not Resolved]

NARRATIVE: CASE EVENT DATE: 20230420
